FAERS Safety Report 7588175-7 (Version None)
Quarter: 2011Q3

REPORT INFORMATION
  Report Type: 
  Country: None (occurrence: None)
  Receive Date: 20110705
  Receipt Date: 20110614
  Transmission Date: 20111222
  Serious: Yes (Other)
  Sender: FDA-Public Use
  Company Number: US-BAYER-201021020NA

PATIENT
  Age: 31 Year
  Sex: Female
  Weight: 131.52 kg

DRUGS (9)
  1. YAZ [Suspect]
     Indication: PRODUCT USED FOR UNKNOWN INDICATION
     Dosage: UNK
     Route: 048
     Dates: start: 20080911, end: 20090401
  2. MULTI-VITAMIN [Concomitant]
  3. YASMIN [Suspect]
     Indication: PRODUCT USED FOR UNKNOWN INDICATION
     Route: 048
     Dates: start: 20070101, end: 20090401
  4. ACETAMINOPHEN [Concomitant]
  5. MOTRIN [Concomitant]
  6. PREVACID [Concomitant]
  7. LEXAPRO [Concomitant]
  8. VICODIN [Concomitant]
  9. DROSPIRENONE AND ETHINYL ESTRADIOL [Suspect]
     Indication: PRODUCT USED FOR UNKNOWN INDICATION
     Dosage: UNK
     Route: 048
     Dates: start: 20090101, end: 20090401

REACTIONS (6)
  - CHOLECYSTITIS CHRONIC [None]
  - NAUSEA [None]
  - GALLBLADDER DISORDER [None]
  - BILE DUCT STONE [None]
  - CHOLELITHIASIS [None]
  - ABDOMINAL PAIN [None]
